FAERS Safety Report 7597619-6 (Version None)
Quarter: 2011Q3

REPORT INFORMATION
  Report Type: 
  Country: None (occurrence: None)
  Receive Date: 20110708
  Receipt Date: 20110627
  Transmission Date: 20111222
  Serious: Yes (Hospitalization)
  Sender: FDA-Public Use
  Company Number: CA-JNJFOC-20110613171

PATIENT
  Sex: Female

DRUGS (25)
  1. SIMPONI [Suspect]
     Indication: RHEUMATOID ARTHRITIS
     Route: 058
  2. RAMIPRIL [Concomitant]
  3. ALL OTHER THERAPEUTIC PRODUCTS [Concomitant]
  4. LYRICA [Concomitant]
  5. METFORMIN HCL [Concomitant]
  6. CYMBALTA [Concomitant]
  7. SPIRIVA [Concomitant]
  8. ALBUTEROL [Concomitant]
  9. DOMPERIDONE [Concomitant]
  10. ALDACTONE [Concomitant]
  11. AMITRIPTYLINE HCL [Concomitant]
  12. VITAMIN D [Concomitant]
  13. PANTOPRAZOLE [Concomitant]
  14. AMOCLAVE [Concomitant]
  15. AVELOX [Concomitant]
  16. METHOTREXATE [Concomitant]
  17. SYNTHROID [Concomitant]
  18. VENLAFAXINE [Concomitant]
  19. LACTULOSE [Concomitant]
  20. ACETAMINOPHEN [Concomitant]
  21. FOLIC ACID [Concomitant]
  22. GEN-ZOPICLONE [Concomitant]
  23. LEVAQUIN [Concomitant]
  24. CRESTOR [Concomitant]
  25. DOCUSATE [Concomitant]

REACTIONS (4)
  - PALPITATIONS [None]
  - DIZZINESS [None]
  - MUSCLE SPASMS [None]
  - VERTIGO [None]
